FAERS Safety Report 10156991 (Version 1)
Quarter: 2014Q2

REPORT INFORMATION
  Report Type: Spontaneous
  Country: US (occurrence: None)
  Receive Date: 20140506
  Receipt Date: 20140506
  Transmission Date: 20141212
  Serious: Yes (Disabling)
  Sender: FDA-Public Use
  Company Number: None

PATIENT
  Age: 56 Year
  Sex: Female

DRUGS (8)
  1. SAPHRIS [Suspect]
     Indication: INSOMNIA
     Dosage: 5MG, 1-2, @BEDTIME, BY MOUTH
     Route: 048
     Dates: start: 20100710, end: 20100719
  2. DOXEPIN HCL [Concomitant]
  3. ABILIFY [Concomitant]
  4. LINSINOPRIL [Concomitant]
  5. METFORMIN [Concomitant]
  6. OXYBUTYNIN [Concomitant]
  7. HYDROCODONEL APAP [Concomitant]
  8. SOMA [Concomitant]

REACTIONS (12)
  - Dizziness [None]
  - Vomiting [None]
  - Aggression [None]
  - Crying [None]
  - Headache [None]
  - Tooth loss [None]
  - Diabetes mellitus [None]
  - Pruritus [None]
  - Urticaria [None]
  - Urinary incontinence [None]
  - Faecal incontinence [None]
  - Somnolence [None]
